FAERS Safety Report 17715061 (Version 2)
Quarter: 2020Q2

REPORT INFORMATION
  Report Type: Spontaneous
  Country: CA (occurrence: CA)
  Receive Date: 20200427
  Receipt Date: 20200615
  Transmission Date: 20200714
  Serious: Yes (Hospitalization, Other)
  Sender: FDA-Public Use
  Company Number: CA-SAKK-2020SA095613AA

PATIENT
  Age: 78 Year
  Sex: Female
  Weight: 93 kg

DRUGS (40)
  1. QUETIAPINE FUMARATE. [Suspect]
     Active Substance: QUETIAPINE FUMARATE
     Dosage: UNK
     Route: 065
  2. PRAMIPEXOLE HYDROCHLORIDE [Suspect]
     Active Substance: PRAMIPEXOLE DIHYDROCHLORIDE
     Dosage: 0.5 MG
     Route: 048
  3. MORPHINE HYDROCHLORIDE [Suspect]
     Active Substance: MORPHINE HYDROCHLORIDE
     Dosage: 10 MG
     Route: 048
  4. BUDESONIDE/FORMOTEROL FUMARATE [Suspect]
     Active Substance: BUDESONIDE\FORMOTEROL FUMARATE
     Dosage: 2 DF, BID
     Route: 065
  5. TRAZODONE HYDROCHLORIDE. [Suspect]
     Active Substance: TRAZODONE HYDROCHLORIDE
     Dosage: 10 MG
     Route: 065
  6. MONTELUKAST [Suspect]
     Active Substance: MONTELUKAST SODIUM
     Dosage: 10 MG, QD
     Route: 048
  7. DOMPERIDONE [Suspect]
     Active Substance: DOMPERIDONE
     Dosage: UNK
     Route: 065
  8. CANDESARTAN CILEXETIL. [Suspect]
     Active Substance: CANDESARTAN CILEXETIL
     Dosage: 8 MG, QD
     Route: 048
  9. PRAMIPEXOLE HYDROCHLORIDE [Suspect]
     Active Substance: PRAMIPEXOLE DIHYDROCHLORIDE
     Dosage: 0.25 MG
     Route: 048
  10. EFINACONAZOLE [Suspect]
     Active Substance: EFINACONAZOLE
     Dosage: UNK
     Route: 065
  11. GLYCERYL TRINITRATE [Suspect]
     Active Substance: NITROGLYCERIN
     Dosage: UNK
     Route: 065
  12. SENNA ALEXANDRINA [Suspect]
     Active Substance: SENNA LEAF
     Dosage: UNK
     Route: 065
  13. RANITIDINE. [Suspect]
     Active Substance: RANITIDINE
     Dosage: UNK
  14. MONTELUKAST SODIUM. [Suspect]
     Active Substance: MONTELUKAST SODIUM
     Dosage: UNK
     Route: 065
  15. LEVOTHYROXINE SODIUM. [Suspect]
     Active Substance: LEVOTHYROXINE SODIUM
     Dosage: UNK
     Route: 065
  16. TRAZODONE HYDROCHLORIDE. [Suspect]
     Active Substance: TRAZODONE HYDROCHLORIDE
     Dosage: 10 MG
     Route: 065
  17. PREGABALIN. [Suspect]
     Active Substance: PREGABALIN
     Dosage: 75 MG
     Route: 048
  18. BUDESONIDE. [Suspect]
     Active Substance: BUDESONIDE
     Dosage: UNK
     Route: 065
  19. ROSUVASTATIN CALCIUM. [Suspect]
     Active Substance: ROSUVASTATIN CALCIUM
     Dosage: UNK
     Route: 065
  20. MEPOLIZUMAB [Suspect]
     Active Substance: MEPOLIZUMAB
     Dosage: 100 MG
     Route: 065
  21. VENTOLIN [Suspect]
     Active Substance: ALBUTEROL SULFATE
     Dosage: UNK
     Route: 065
  22. LANSOPRAZOLE. [Suspect]
     Active Substance: LANSOPRAZOLE
     Dosage: UNK
     Route: 065
  23. MORPHINE HYDROCHLORIDE [Suspect]
     Active Substance: MORPHINE HYDROCHLORIDE
     Dosage: 10 MG
     Route: 065
  24. MOMETASONE FUROATE. [Suspect]
     Active Substance: MOMETASONE FUROATE
     Dosage: UNK
     Route: 065
  25. ZOPICLONE [Suspect]
     Active Substance: ZOPICLONE
     Dosage: UNK
     Route: 065
  26. INFLUENZA VACCINE [Suspect]
     Active Substance: INFLUENZA VIRUS VACCINE
     Indication: PROPHYLAXIS
     Route: 065
  27. PARACETAMOL [Suspect]
     Active Substance: ACETAMINOPHEN
     Dosage: 1000 MG
     Route: 065
  28. PANTOPRAZOLE [Suspect]
     Active Substance: PANTOPRAZOLE
     Dosage: UNK
     Route: 065
  29. TIOTROPIUM BROMIDE [Suspect]
     Active Substance: TIOTROPIUM BROMIDE
     Dosage: 1 DF, QD
     Route: 065
  30. VITAMIN D NOS [Suspect]
     Active Substance: VITAMIN D NOS
     Dosage: UNK
     Route: 048
  31. XOLAIR [Suspect]
     Active Substance: OMALIZUMAB
     Dosage: UNK
     Route: 065
  32. ATROVENT [Suspect]
     Active Substance: IPRATROPIUM BROMIDE
     Dosage: UNK
     Route: 065
  33. LEVOTHYROXINE SODIUM. [Suspect]
     Active Substance: LEVOTHYROXINE SODIUM
     Dosage: UNK
     Route: 065
  34. PANTOPRAZOLE [Suspect]
     Active Substance: PANTOPRAZOLE
     Dosage: UNK
     Route: 065
  35. DEXILANT [Suspect]
     Active Substance: DEXLANSOPRAZOLE
     Dosage: UNK
     Route: 065
  36. SENNOSIDE A+B [Suspect]
     Active Substance: SENNOSIDES A AND B
     Dosage: UNK
     Route: 065
  37. RISEDRONATE SODIUM. [Suspect]
     Active Substance: RISEDRONATE SODIUM
     Dosage: UNK
     Route: 065
  38. AZITHROMYCIN ANHYDROUS. [Suspect]
     Active Substance: AZITHROMYCIN ANHYDROUS
     Dosage: UNK
     Route: 065
  39. MEPOLIZUMAB [Suspect]
     Active Substance: MEPOLIZUMAB
     Indication: ASTHMA
     Dosage: 100 MG
     Route: 065
  40. PREVNAR [Suspect]
     Active Substance: PNEUMOCOCCAL 7-VALENT CONJUGATE VACCINE (DIPHTHERIA CRM197 PROTEIN)
     Dosage: UNK
     Route: 065

REACTIONS (35)
  - Anaemia [Unknown]
  - Haemoptysis [Unknown]
  - Hypoxia [Unknown]
  - Musculoskeletal stiffness [Unknown]
  - Obstructive airways disorder [Unknown]
  - Rales [Unknown]
  - Sputum discoloured [Unknown]
  - Upper respiratory tract infection [Unknown]
  - Constipation [Unknown]
  - Bronchopulmonary aspergillosis allergic [Unknown]
  - Fatigue [Unknown]
  - Asthenia [Unknown]
  - Cough [Unknown]
  - Pleural effusion [Unknown]
  - Pyrexia [Unknown]
  - Total lung capacity decreased [Unknown]
  - Gastrooesophageal reflux disease [Unknown]
  - Oedema peripheral [Unknown]
  - Abdominal pain upper [Unknown]
  - Aspiration [Unknown]
  - Lung opacity [Unknown]
  - Pulmonary fibrosis [Unknown]
  - Transaminases increased [Unknown]
  - Tremor [Unknown]
  - Headache [Unknown]
  - Bronchiectasis [Unknown]
  - Wheezing [Unknown]
  - Pain [Unknown]
  - Liver function test increased [Unknown]
  - Drug ineffective [Unknown]
  - Dyspnoea [Unknown]
  - Drug hypersensitivity [Unknown]
  - Asthma [Unknown]
  - Lower respiratory tract infection [Unknown]
  - Pneumonia [Unknown]
